FAERS Safety Report 10188586 (Version 7)
Quarter: 2019Q4

REPORT INFORMATION
  Report Type: Spontaneous
  Country: US (occurrence: US)
  Receive Date: 20140522
  Receipt Date: 20191017
  Transmission Date: 20200122
  Serious: Yes (Hospitalization, Other)
  Sender: FDA-Public Use
  Company Number: US-SA-2014SA033915

PATIENT
  Age: 78 Year
  Sex: Male

DRUGS (5)
  1. INFLUENZA VACCINE [Suspect]
     Active Substance: INFLUENZA VIRUS VACCINE
     Indication: IMMUNISATION
     Route: 065
  2. LANTUS SOLOSTAR [Suspect]
     Active Substance: INSULIN GLARGINE
     Dosage: 13 DF,QD
     Route: 051
     Dates: start: 201601
  3. LANTUS SOLOSTAR [Suspect]
     Active Substance: INSULIN GLARGINE
     Dosage: 11 DF,QD
     Route: 051
  4. LANTUS SOLOSTAR [Suspect]
     Active Substance: INSULIN GLARGINE
     Dosage: 13 DF,QD
     Route: 051
     Dates: start: 201601
  5. LANTUS SOLOSTAR [Suspect]
     Active Substance: INSULIN GLARGINE
     Indication: TYPE 2 DIABETES MELLITUS
     Dosage: 9 DF,QD
     Route: 058
     Dates: start: 201403

REACTIONS (5)
  - Product storage error [Unknown]
  - Pain in extremity [Recovered/Resolved]
  - Blood glucose increased [Unknown]
  - Pneumonia [Unknown]
  - Product administration error [Unknown]

NARRATIVE: CASE EVENT DATE: 201403
